FAERS Safety Report 7505596-9 (Version None)
Quarter: 2011Q2

REPORT INFORMATION
  Report Type: 
  Country: None (occurrence: None)
  Receive Date: 20110526
  Receipt Date: 20110518
  Transmission Date: 20111010
  Serious: Yes (Hospitalization, Other)
  Sender: FDA-Public Use
  Company Number: US-PFIZER INC-2011111098

PATIENT
  Sex: Female

DRUGS (1)
  1. DEPO-PROVERA [Suspect]
     Dosage: UNK

REACTIONS (4)
  - JOINT SPRAIN [None]
  - HYPOTENSION [None]
  - INFECTION SUSCEPTIBILITY INCREASED [None]
  - JOINT CREPITATION [None]
